FAERS Safety Report 5713135-8 (Version None)
Quarter: 2008Q2

REPORT INFORMATION
  Report Type: 
  Country: None (occurrence: None)
  Receive Date: 20080418
  Receipt Date: 20080404
  Transmission Date: 20081010
  Serious: Yes (Disabling)
  Sender: FDA-Public Use
  Company Number: FABR-1000192

PATIENT
  Age: 51 Year
  Sex: Female
  Weight: 55 kg

DRUGS (5)
  1. FABRAZYME [Suspect]
     Indication: FABRY'S DISEASE
     Dosage: 50 MG, Q2W, INTRAVENOUS
     Route: 042
     Dates: start: 20020306
  2. TEMOCAPRIL HYDROCHLORIDE (TEMOCAPRIL HYDROCHLORIDE) [Concomitant]
  3. ALLOPURINOL [Concomitant]
  4. ASPIRIN [Concomitant]
  5. NITRAZEPAM [Concomitant]

REACTIONS (3)
  - CONDITION AGGRAVATED [None]
  - HAEMOGLOBIN DECREASED [None]
  - RENAL FAILURE [None]
